FAERS Safety Report 23010122 (Version 3)
Quarter: 2023Q4

REPORT INFORMATION
  Report Type: Report from Study
  Country: RO (occurrence: None)
  Receive Date: 20230929
  Receipt Date: 20231212
  Transmission Date: 20240110
  Serious: Yes (Other)
  Sender: FDA-Public Use
  Company Number: 2023A219758

PATIENT
  Sex: Female

DRUGS (2)
  1. TAGRISSO [Suspect]
     Active Substance: OSIMERTINIB
     Indication: Bronchopulmonary disease
     Route: 048
     Dates: start: 202302
  2. TAGRISSO [Suspect]
     Active Substance: OSIMERTINIB
     Indication: Bronchopulmonary disease
     Route: 048
     Dates: end: 202307

REACTIONS (5)
  - Laboratory test abnormal [Unknown]
  - Leukopenia [Unknown]
  - Pigmentation disorder [Unknown]
  - Pruritus [Unknown]
  - Platelet count abnormal [Unknown]

NARRATIVE: CASE EVENT DATE: 20230701
